FAERS Safety Report 8456040-9 (Version None)
Quarter: 2012Q2

REPORT INFORMATION
  Report Type: 
  Country: None (occurrence: None)
  Receive Date: 20120621
  Receipt Date: 20120612
  Transmission Date: 20120825
  Serious: Yes (Hospitalization)
  Sender: FDA-Public Use
  Company Number: PHHY2012JP051365

PATIENT
  Age: 53 Year
  Sex: Female

DRUGS (6)
  1. VOLTAREN [Suspect]
     Indication: PAIN
     Dosage: 25 MG, DAILY
     Route: 048
     Dates: start: 20120601
  2. MUCOSTA [Concomitant]
     Dosage: 100 MG, TID
     Route: 048
     Dates: start: 20120601
  3. COLIOPAN [Concomitant]
     Dosage: 3 DF, TID
     Route: 048
  4. CEFAZOLIN SODIUM [Concomitant]
     Dosage: 3 G, UNK
     Route: 048
     Dates: start: 20120604
  5. ROCEPHIN [Concomitant]
     Dosage: UNK
     Route: 042
     Dates: start: 20120601
  6. CEFDINIR [Concomitant]
     Dosage: 100 MG, DAILY
     Route: 048
     Dates: start: 20120601

REACTIONS (6)
  - CHOLANGITIS [None]
  - PRURITUS [None]
  - LIVER DISORDER [None]
  - HEPATIC FUNCTION ABNORMAL [None]
  - URTICARIA [None]
  - ABDOMINAL PAIN UPPER [None]
